FAERS Safety Report 20049751 (Version 1)
Quarter: 2021Q4

REPORT INFORMATION
  Report Type: Spontaneous
  Country: GD (occurrence: GD)
  Receive Date: 20211109
  Receipt Date: 20211109
  Transmission Date: 20220304
  Serious: Yes (Other)
  Sender: FDA-Public Use
  Company Number: GD-DENTSPLY-2021SCDP000328

PATIENT
  Age: 31 Year
  Sex: Female

DRUGS (1)
  1. LIDOCAINE [Suspect]
     Active Substance: LIDOCAINE
     Indication: Product used for unknown indication
     Dosage: UNK BOLUS

REACTIONS (5)
  - Horner^s syndrome [Recovered/Resolved]
  - Loss of consciousness [Recovered/Resolved]
  - Nystagmus [Recovered/Resolved]
  - Pupillary reflex impaired [Recovered/Resolved]
  - Maternal exposure during delivery [Unknown]
